FAERS Safety Report 6418949-7 (Version None)
Quarter: 2009Q4

REPORT INFORMATION
  Report Type: 
  Country: None (occurrence: None)
  Receive Date: 20091029
  Receipt Date: 20091021
  Transmission Date: 20100525
  Serious: Yes (Hospitalization, Other)
  Sender: FDA-Public Use
  Company Number: SE-ASTRAZENECA-2009SE21655

PATIENT
  Age: 83 Year
  Sex: Female

DRUGS (7)
  1. OMEPRAZOLE [Suspect]
     Route: 048
  2. WARAN [Interacting]
     Indication: PULMONARY EMBOLISM
     Route: 048
     Dates: start: 20080801, end: 20081123
  3. VAGIFEM [Concomitant]
     Route: 067
  4. UNSPECIFIED [Concomitant]
     Route: 065
  5. KALEORID [Concomitant]
     Route: 065
  6. PREDNISOLONE [Concomitant]
     Route: 065
  7. FURIX [Concomitant]
     Route: 065

REACTIONS (2)
  - DRUG INTERACTION [None]
  - HAEMATOMA [None]
